FAERS Safety Report 24635873 (Version 1)
Quarter: 2024Q4

REPORT INFORMATION
  Report Type: Spontaneous
  Country: US (occurrence: US)
  Receive Date: 20241119
  Receipt Date: 20241119
  Transmission Date: 20250115
  Serious: No
  Sender: CATALYST PHARMA
  Company Number: US-CATALYST PHARMACEUTICALS-US-CATA-24-00986

PATIENT
  Age: 18 Year
  Sex: Male
  Weight: 33.107 kg

DRUGS (8)
  1. AGAMREE [Suspect]
     Active Substance: VAMOROLONE
     Indication: Duchenne muscular dystrophy
     Dosage: 3 ML
     Route: 048
     Dates: start: 20240530
  2. OMEPRAZOLE AND SODIUM BICARBONATE [Concomitant]
     Active Substance: OMEPRAZOLE\SODIUM BICARBONATE
     Indication: Gastrooesophageal reflux disease
     Dosage: 1 PACKET A DAY
     Route: 065
  3. VYONDYS [Concomitant]
     Indication: Duchenne muscular dystrophy
     Dosage: 1100 MG ONCE A WEEK
     Route: 042
  4. ZOFRAN [Concomitant]
     Active Substance: ONDANSETRON HYDROCHLORIDE
     Indication: Nausea
     Dosage: 4 MG A WEEK
     Route: 065
  5. ZOFRAN [Concomitant]
     Active Substance: ONDANSETRON HYDROCHLORIDE
     Indication: Vomiting
  6. SODIUM FLUORIDE [Concomitant]
     Active Substance: SODIUM FLUORIDE\SODIUM MONOFLUOROPHOSPHATE
     Indication: Tooth disorder
     Dosage: AT BEDTIME
     Route: 004
  7. BOOST KID ESSENTIALS [Concomitant]
     Indication: Nutritional supplementation
     Dosage: 25 FL OZ
     Route: 048
  8. NUTRICIA [Concomitant]
     Indication: Nutritional supplementation
     Dosage: 6 SCOOPS ONCE A DAY
     Route: 048

REACTIONS (1)
  - Pharyngitis streptococcal [Not Recovered/Not Resolved]

NARRATIVE: CASE EVENT DATE: 20240903
